FAERS Safety Report 6189728-3 (Version None)
Quarter: 2009Q2

REPORT INFORMATION
  Report Type: 
  Country: None (occurrence: None)
  Receive Date: 20090514
  Receipt Date: 20090506
  Transmission Date: 20091009
  Serious: Yes (Other)
  Sender: FDA-Public Use
  Company Number: US-ROCHE-631897

PATIENT
  Age: 65 Year
  Sex: Female

DRUGS (4)
  1. BONIVA [Suspect]
     Indication: DRUG USE FOR UNKNOWN INDICATION
     Dosage: MONTHLY
     Route: 065
  2. BONIVA [Suspect]
     Route: 065
  3. ASACOL [Concomitant]
  4. PLAQUENIL [Concomitant]

REACTIONS (1)
  - COLITIS ULCERATIVE [None]
